FAERS Safety Report 7040608-0 (Version None)
Quarter: 2010Q4

REPORT INFORMATION
  Report Type: 
  Country: None (occurrence: None)
  Receive Date: 20101012
  Receipt Date: 20101004
  Transmission Date: 20110411
  Serious: Yes (Life-Threatening, Hospitalization)
  Sender: FDA-Public Use
  Company Number: JP-AMGEN-QUU439319

PATIENT
  Sex: Female
  Weight: 57 kg

DRUGS (9)
  1. ENBREL [Suspect]
     Indication: JUVENILE ARTHRITIS
     Route: 058
     Dates: start: 20100522, end: 20100605
  2. ENBREL [Suspect]
     Route: 058
     Dates: start: 20100612, end: 20100708
  3. MEDROL [Suspect]
     Indication: JUVENILE ARTHRITIS
     Dosage: UNSPECIFIED
  4. ISCOTIN [Suspect]
     Indication: JUVENILE ARTHRITIS
     Route: 048
     Dates: start: 20100522, end: 20100801
  5. SOL-MELCORT [Concomitant]
     Indication: ARTHRITIS
     Route: 042
     Dates: start: 20100424, end: 20100424
  6. METHOTREXATE [Concomitant]
     Indication: STILL'S DISEASE ADULT ONSET
     Route: 048
     Dates: start: 20060701, end: 20070301
  7. METHOTREXATE [Concomitant]
     Route: 048
     Dates: start: 20070301, end: 20100710
  8. METHOTREXATE [Concomitant]
     Route: 048
     Dates: start: 20100824
  9. METHOTREXATE [Concomitant]
     Dosage: 12.5 MG
     Route: 048

REACTIONS (2)
  - ERYTHEMA MULTIFORME [None]
  - HEPATITIS ACUTE [None]
